FAERS Safety Report 11152843 (Version 2)
Quarter: 2015Q2

REPORT INFORMATION
  Report Type: Spontaneous
  Country: JP (occurrence: JP)
  Receive Date: 20150601
  Receipt Date: 20150629
  Transmission Date: 20150821
  Serious: Yes (Hospitalization)
  Sender: FDA-Public Use
  Company Number: JP-ELI_LILLY_AND_COMPANY-JP201505009526

PATIENT
  Age: 74 Year
  Sex: Male

DRUGS (5)
  1. EBRANTIL                           /00631801/ [Suspect]
     Active Substance: URAPIDIL
     Indication: PRODUCT USED FOR UNKNOWN INDICATION
     Dosage: UNK
     Route: 048
     Dates: start: 20150105, end: 20150201
  2. HARNAL [Suspect]
     Active Substance: TAMSULOSIN HYDROCHLORIDE
     Indication: PRODUCT USED FOR UNKNOWN INDICATION
     Dosage: UNK
     Route: 048
     Dates: end: 20150105
  3. EBRANTIL                           /00631801/ [Suspect]
     Active Substance: URAPIDIL
     Dosage: UNK
     Route: 048
     Dates: start: 20150302
  4. EBRANTIL                           /00631801/ [Suspect]
     Active Substance: URAPIDIL
     Dosage: UNK
     Route: 048
     Dates: start: 20150202, end: 20150301
  5. ZALUTIA [Suspect]
     Active Substance: TADALAFIL
     Indication: BENIGN PROSTATIC HYPERPLASIA
     Dosage: 5 MG, QD
     Route: 048
     Dates: start: 20141002, end: 20150303

REACTIONS (1)
  - Hepatitis acute [Recovered/Resolved]

NARRATIVE: CASE EVENT DATE: 20150226
